FAERS Safety Report 8571669-5 (Version None)
Quarter: 2012Q3

REPORT INFORMATION
  Report Type: 
  Country: None (occurrence: None)
  Receive Date: 20120806
  Receipt Date: 20120724
  Transmission Date: 20120928
  Serious: Yes (Other)
  Sender: FDA-Public Use
  Company Number: US-JNJFOC-20120714639

PATIENT
  Sex: Female
  Weight: 81.65 kg

DRUGS (11)
  1. VITAMIN B COMPLEX CAP [Concomitant]
     Route: 048
  2. MAGNESIUM [Concomitant]
     Route: 048
  3. FENTANYL-100 [Suspect]
     Indication: BACK PAIN
     Route: 062
  4. MULTI-VITAMINS [Concomitant]
     Route: 048
  5. CALCIUM MEDICATIONS [Concomitant]
     Indication: BLOOD CALCIUM DECREASED
     Route: 048
     Dates: end: 20120601
  6. DURAGESIC-100 [Suspect]
     Route: 062
  7. HYDROCODONE BITARTRATE [Concomitant]
     Indication: BREAKTHROUGH PAIN
     Route: 048
  8. NEURONTIN [Concomitant]
     Indication: BACK PAIN
     Dosage: 600 MG 2 TABLETS 3 TIMES PER DAY
     Route: 048
  9. ZINC SULFATE [Concomitant]
     Route: 048
  10. FENTANYL-100 [Suspect]
     Indication: BACK PAIN
     Route: 062
  11. DURAGESIC-100 [Suspect]
     Indication: BACK PAIN
     Route: 062

REACTIONS (12)
  - HYPERTENSION [None]
  - DRUG ABUSE [None]
  - ARTHRITIS [None]
  - DRUG INEFFECTIVE [None]
  - BLOOD CHOLESTEROL DECREASED [None]
  - PRODUCT QUALITY ISSUE [None]
  - BACK PAIN [None]
  - POOR QUALITY DRUG ADMINISTERED [None]
  - TYPE 2 DIABETES MELLITUS [None]
  - BLOOD CALCIUM ABNORMAL [None]
  - SPINAL COLUMN STENOSIS [None]
  - THERAPEUTIC RESPONSE DECREASED [None]
